FAERS Safety Report 20663895 (Version 1)
Quarter: 2022Q2

REPORT INFORMATION
  Report Type: Other
  Country: GB (occurrence: GB)
  Receive Date: 20220401
  Receipt Date: 20220401
  Transmission Date: 20220721
  Serious: Yes (Other)
  Sender: FDA-Public Use
  Company Number: GB-MACLEODS PHARMACEUTICALS US LTD-MAC2022035051

PATIENT

DRUGS (1)
  1. ESCITALOPRAM [Suspect]
     Active Substance: ESCITALOPRAM OXALATE
     Indication: Product used for unknown indication
     Dosage: 10 MILLIGRAM, TABLET, QD
     Route: 065
     Dates: start: 20220319, end: 20220319

REACTIONS (4)
  - Restlessness [Recovered/Resolved]
  - Nausea [Unknown]
  - Headache [Unknown]
  - Medication error [Unknown]

NARRATIVE: CASE EVENT DATE: 20220319
